FAERS Safety Report 9303772 (Version 2)
Quarter: 2013Q3

REPORT INFORMATION
  Report Type: Spontaneous
  Country: AU (occurrence: AU)
  Receive Date: 20130522
  Receipt Date: 20130709
  Transmission Date: 20140515
  Serious: Yes (Death, Hospitalization)
  Sender: FDA-Public Use
  Company Number: AU-B.I. PHARMACEUTICALS,INC./RIDGEFIELD-2013-AU-00591AU

PATIENT
  Age: 53 Year
  Sex: Male

DRUGS (11)
  1. PRADAXA [Suspect]
     Indication: ATRIAL FIBRILLATION
     Dosage: 300 MG
     Dates: start: 20110704
  2. PRADAXA [Suspect]
     Indication: CEREBROVASCULAR ACCIDENT PROPHYLAXIS
  3. RAMIPRIL [Concomitant]
  4. EPILIM [Concomitant]
     Dosage: 2000 MG
  5. DIAMICRON [Concomitant]
     Dosage: 30 MG
  6. LIPITOR [Concomitant]
  7. METOHEXAL [Concomitant]
     Dosage: 25 MG
  8. DIABEX XR [Concomitant]
     Dosage: 2 G
  9. IMDUR [Concomitant]
     Dosage: 60 MG
  10. PANTOPRAZOLE [Concomitant]
  11. PRISTIQ [Concomitant]

REACTIONS (1)
  - Cerebrovascular accident [Fatal]
